FAERS Safety Report 12699844 (Version 1)
Quarter: 2016Q3

REPORT INFORMATION
  Report Type: Report from Study
  Country: AU (occurrence: AU)
  Receive Date: 20160830
  Receipt Date: 20160830
  Transmission Date: 20161109
  Serious: Yes (Life-Threatening, Hospitalization, Other)
  Sender: FDA-Public Use
  Company Number: AU-MYLANLABS-2016M1036437

PATIENT

DRUGS (3)
  1. EVEROLIMUS [Suspect]
     Active Substance: EVEROLIMUS
     Indication: LARGE CELL LUNG CANCER STAGE IV
     Dosage: 10 MG, QD
     Route: 048
  2. LETROZOLE. [Suspect]
     Active Substance: LETROZOLE
     Indication: LARGE CELL LUNG CANCER STAGE IV
     Dosage: 2.5 MG, QD
     Route: 065
  3. DOCETAXEL. [Suspect]
     Active Substance: DOCETAXEL
     Indication: LARGE CELL LUNG CANCER STAGE IV
     Route: 065

REACTIONS (1)
  - Pulmonary toxicity [Recovering/Resolving]
